FAERS Safety Report 5520604-2 (Version None)
Quarter: 2007Q4

REPORT INFORMATION
  Report Type: 
  Country: None (occurrence: None)
  Receive Date: 20071119
  Receipt Date: 20071109
  Transmission Date: 20080405
  Serious: Yes (Other)
  Sender: FDA-Public Use
  Company Number: CH-AMGEN-UK252081

PATIENT
  Sex: Female

DRUGS (1)
  1. KINERET [Suspect]
     Indication: POLYARTHRITIS
     Route: 065
     Dates: end: 20071101

REACTIONS (1)
  - HYPERSENSITIVITY [None]
